FAERS Safety Report 6186972-6 (Version None)
Quarter: 2009Q2

REPORT INFORMATION
  Report Type: 
  Country: None (occurrence: None)
  Receive Date: 20090508
  Receipt Date: 20090508
  Transmission Date: 20091009
  Serious: Yes (Life-Threatening, Hospitalization, Disabling)
  Sender: FDA-Public Use
  Company Number: None

PATIENT
  Age: 8 Year
  Sex: Male
  Weight: 37.6486 kg

DRUGS (1)
  1. PROAIR HFA [Suspect]
     Indication: MULTIPLE ALLERGIES
     Dosage: 2 PUFFS 4 HOURS INHAL
     Route: 055
     Dates: start: 20080925, end: 20090427

REACTIONS (9)
  - ASTHMA [None]
  - DEVICE OCCLUSION [None]
  - GENERAL PHYSICAL HEALTH DETERIORATION [None]
  - INCORRECT DOSE ADMINISTERED [None]
  - MALAISE [None]
  - OROPHARYNGEAL PAIN [None]
  - PRODUCT QUALITY ISSUE [None]
  - RHINORRHOEA [None]
  - VIRAL INFECTION [None]
